FAERS Safety Report 15979023 (Version 1)
Quarter: 2019Q1

REPORT INFORMATION
  Report Type: Spontaneous
  Country: NZ (occurrence: NZ)
  Receive Date: 20190219
  Receipt Date: 20190219
  Transmission Date: 20190418
  Serious: Yes (Other)
  Sender: FDA-Public Use
  Company Number: NZ-BAXTER-2018BAX031259

PATIENT
  Age: 22 Year
  Sex: Female

DRUGS (16)
  1. SYNTHAMIN [Suspect]
     Active Substance: AMINO ACIDS
     Indication: MALNUTRITION
     Dosage: CENTRAL IV LINE,
     Route: 042
     Dates: start: 20181212, end: 20181214
  2. SODIUM CHLORIDE. [Suspect]
     Active Substance: SODIUM CHLORIDE
     Indication: MALNUTRITION
     Dosage: INTRAVENOUS (CENTRAL LINE), STRENGTH: 4 MMOL/ML; (BAXTER OFF-LICENSE PRODUCT)
     Route: 042
     Dates: start: 20181212, end: 20181214
  3. MAGNESIUM SULFATE. [Suspect]
     Active Substance: MAGNESIUM SULFATE
     Indication: MALNUTRITION
     Dosage: INTRAVENOUS (CENTRAL LINE), STRENGTH: 2 MMOL/ML; (BAXTER OFF-LICENSE PRODUCT)
     Route: 042
     Dates: start: 20181212, end: 20181214
  4. OMEGAVEN [Suspect]
     Active Substance: FISH OIL
     Indication: MALNUTRITION
     Dosage: INTRAVENOUS (CENTRAL LINE)
     Route: 042
     Dates: start: 20181212, end: 20181214
  5. IRON [Suspect]
     Active Substance: IRON
     Indication: MALNUTRITION
     Dosage: INTRAVENOUS (CENTRAL LINE), IRON SYRINGE; (BAXTER OFF-LICENSE PRODUCT)
     Route: 042
     Dates: start: 20181212, end: 20181214
  6. CERNEVIT [Suspect]
     Active Substance: VITAMINS
     Indication: MALNUTRITION
     Dosage: INTRAVENOUS (CENTRAL LINE)
     Route: 042
     Dates: start: 20181212, end: 20181214
  7. POTASSIUM DI-H PHOSPHATE [Suspect]
     Active Substance: POTASSIUM PHOSPHATE, MONOBASIC
     Indication: MALNUTRITION
     Dosage: INTRAVENOUS (CENTRAL LINE), STRENGTH: 1 MMOL/ML; (BAXTER OFF-LICENSE PRODUCT)
     Route: 042
     Dates: start: 20181212, end: 20181214
  8. GLUCOSE INJECTION, 70%, SOLUTION FOR INFUSION [Suspect]
     Active Substance: DEXTROSE
     Indication: MALNUTRITION
     Dosage: INTRAVENOUS (CENTRAL LINE)
     Route: 042
     Dates: start: 20181212, end: 20181214
  9. WATER FOR INJECTION [Suspect]
     Active Substance: WATER
     Indication: MALNUTRITION
     Dosage: INTRAVENOUS (CENTRAL LINE)
     Route: 042
     Dates: start: 20181212, end: 20181214
  10. CLINOLEIC, EMULSION FOR INFUSION [Suspect]
     Active Substance: OLIVE OIL\SOYBEAN OIL
     Indication: MALNUTRITION
     Dosage: INTRAVENOUS (CENTRAL LINE)
     Route: 042
     Dates: start: 20181212, end: 20181214
  11. ADULT TRACE ELEMENTS [Suspect]
     Active Substance: MINERALS
     Indication: MALNUTRITION
     Dosage: INTRAVENOUS (CENTRAL LINE), (BAXTER OFF-LICENSE PRODUCT)
     Route: 042
     Dates: start: 20181212, end: 20181214
  12. CALCIUM GLUCONATE. [Suspect]
     Active Substance: CALCIUM GLUCONATE
     Indication: MALNUTRITION
     Dosage: STRENGTH: 0.22 MMOL/ML; (BAXTER OFF-LICENSE PRODUCT)
     Route: 042
     Dates: start: 20181212, end: 20181214
  13. SODIUM ACETATE. [Suspect]
     Active Substance: SODIUM ACETATE
     Indication: MALNUTRITION
     Dosage: INTRAVENOUS (CENTRAL LINE), STRENGTH: 2 MMOL/ML; (BAXTER OFF-LICENSE PRODUCT)
     Route: 042
     Dates: start: 20181212, end: 20181214
  14. WATER FOR INJECTION [Suspect]
     Active Substance: WATER
     Indication: MALNUTRITION
     Dosage: INTRAVENOUS (CENTRAL LINE), (BAXTER OFF-LICENSE PRODUCT)
     Route: 042
     Dates: start: 20181212, end: 20181214
  15. POTASSIUM CHLORIDE. [Suspect]
     Active Substance: POTASSIUM CHLORIDE
     Indication: MALNUTRITION
     Dosage: INTRAVENOUS (CENTRAL LINE), STRENGTH: 3 MMOL/ML; (BAXTER OFF-LICENSE PRODUCT)
     Route: 042
     Dates: start: 20181212, end: 20181214
  16. TPN [Suspect]
     Active Substance: AMINO ACIDS\DEXTROSE\ELECTROLYTES NOS\SOYBEAN OIL
     Indication: PARENTERAL NUTRITION
     Route: 065

REACTIONS (7)
  - Nausea [Unknown]
  - Pruritus [Recovered/Resolved]
  - Pallor [Recovered/Resolved]
  - Swollen tongue [Unknown]
  - Heart rate decreased [Unknown]
  - Dyspnoea [Recovered/Resolved]
  - Abdominal pain upper [Recovered/Resolved]

NARRATIVE: CASE EVENT DATE: 201812
